FAERS Safety Report 17001648 (Version 1)
Quarter: 2019Q4

REPORT INFORMATION
  Report Type: Spontaneous
  Country: US (occurrence: US)
  Receive Date: 20191106
  Receipt Date: 20191106
  Transmission Date: 20200122
  Serious: No
  Sender: FDA-Public Use
  Company Number: US-TEVA-2019-US-1131590

PATIENT
  Age: 16 Year
  Sex: Male

DRUGS (1)
  1. TEVA CLONAZEPAM [Suspect]
     Active Substance: CLONAZEPAM
     Indication: SEIZURE
     Dates: start: 20191027

REACTIONS (5)
  - Gastrooesophageal reflux disease [Unknown]
  - Drooling [Unknown]
  - Product substitution issue [Unknown]
  - Cough [Unknown]
  - Hiccups [Unknown]

NARRATIVE: CASE EVENT DATE: 20191028
